FAERS Safety Report 5679592-0 (Version None)
Quarter: 2008Q1

REPORT INFORMATION
  Report Type: 
  Country: None (occurrence: None)
  Receive Date: 20080325
  Receipt Date: 20080313
  Transmission Date: 20080703
  Serious: Yes (Other)
  Sender: FDA-Public Use
  Company Number: US-PFIZER INC-2008025001

PATIENT
  Sex: Female

DRUGS (6)
  1. XANAX [Suspect]
     Indication: CARDIAC DISORDER
  2. CALAN [Suspect]
     Indication: BUNDLE BRANCH BLOCK RIGHT
  3. VERAPAMIL [Suspect]
     Indication: BUNDLE BRANCH BLOCK RIGHT
  4. NITROSTAT [Concomitant]
  5. ISOPTIN [Concomitant]
  6. TENORMIN [Concomitant]

REACTIONS (12)
  - BLOOD POTASSIUM DECREASED [None]
  - CARDIAC DISCOMFORT [None]
  - CARDIAC VALVE DISEASE [None]
  - CEREBROVASCULAR ACCIDENT [None]
  - DIZZINESS [None]
  - DRUG INEFFECTIVE [None]
  - FLATULENCE [None]
  - HEADACHE [None]
  - ORGAN FAILURE [None]
  - PNEUMONIA [None]
  - SKIN ODOUR ABNORMAL [None]
  - THROMBOSIS [None]
